FAERS Safety Report 8137757-2 (Version None)
Quarter: 2012Q1

REPORT INFORMATION
  Report Type: 
  Country: None (occurrence: None)
  Receive Date: 20120215
  Receipt Date: 20120213
  Transmission Date: 20120608
  Serious: No
  Sender: FDA-Public Use
  Company Number: US-PFIZER INC-2012039276

PATIENT
  Sex: Female
  Weight: 70.295 kg

DRUGS (7)
  1. CADUET [Suspect]
     Dosage: UNK
  2. AMLODIPINE BESYLATE [Suspect]
     Indication: CHEST DISCOMFORT
     Dosage: 5 MG, DAILY
  3. SYNTHROID [Concomitant]
     Indication: HYPOTHYROIDISM
     Dosage: 88 UG, UNK
  4. ATENOLOL [Concomitant]
     Indication: HYPERTENSION
     Dosage: 50 MG, DAILY
  5. LIPITOR [Suspect]
     Indication: BLOOD CHOLESTEROL INCREASED
  6. LIPITOR [Suspect]
     Indication: CHEST DISCOMFORT
     Dosage: 10 MG, DAILY
  7. AMLODIPINE BESYLATE [Suspect]
     Indication: BLOOD CHOLESTEROL INCREASED

REACTIONS (4)
  - GLOSSODYNIA [None]
  - DRY MOUTH [None]
  - GINGIVAL DISORDER [None]
  - TONGUE ULCERATION [None]
